FAERS Safety Report 14541476 (Version 1)
Quarter: 2018Q1

REPORT INFORMATION
  Report Type: Spontaneous
  Country: FR (occurrence: FR)
  Receive Date: 20180216
  Receipt Date: 20180216
  Transmission Date: 20180509
  Serious: Yes (Hospitalization)
  Sender: FDA-Public Use
  Company Number: FR-OTSUKA-DJ20102960

PATIENT

DRUGS (3)
  1. CHEMOTHERAPY (UNCLASSIFIED) [Suspect]
     Active Substance: UNSPECIFIED INGREDIENT
     Indication: LEUKAEMIA
     Route: 065
  2. CHEMOTHERAPY [Interacting]
     Active Substance: UNSPECIFIED INGREDIENT
     Indication: LEUKAEMIA
  3. ABILIFY [Suspect]
     Active Substance: ARIPIPRAZOLE
     Route: 065

REACTIONS (1)
  - Drug interaction [Unknown]
